FAERS Safety Report 6467457-6 (Version None)
Quarter: 2009Q4

REPORT INFORMATION
  Report Type: 
  Country: None (occurrence: None)
  Receive Date: 20091202
  Receipt Date: 20091124
  Transmission Date: 20100525
  Serious: Yes (Other)
  Sender: FDA-Public Use
  Company Number: GXKR2009ZA12755

PATIENT
  Age: 25 Year
  Sex: Male

DRUGS (1)
  1. PROPRANOLOL (NGX) [Suspect]
     Indication: TACHYCARDIA
     Dosage: 20 MG, Q8H
     Route: 048

REACTIONS (3)
  - ABDOMINAL DISTENSION [None]
  - COLONIC PSEUDO-OBSTRUCTION [None]
  - RECTAL TUBE INSERTION [None]
